FAERS Safety Report 7005686-3 (Version None)
Quarter: 2010Q3

REPORT INFORMATION
  Report Type: 
  Country: None (occurrence: None)
  Receive Date: 20100921
  Receipt Date: 20100910
  Transmission Date: 20110219
  Serious: Yes (Hospitalization, Other)
  Sender: FDA-Public Use
  Company Number: B0675502A

PATIENT
  Age: 36 Year
  Sex: Female
  Weight: 54 kg

DRUGS (8)
  1. LAMOTRIGINE [Suspect]
     Route: 048
     Dates: start: 20080319, end: 20100123
  2. LANSOPRAZOLE [Concomitant]
     Indication: PRODUCT USED FOR UNKNOWN INDICATION
     Route: 065
     Dates: start: 20030324
  3. SERTRALINE HYDROCHLORIDE [Concomitant]
     Dates: start: 20060111
  4. PROPRANOLOL HYDROCHLORIDE [Concomitant]
     Dates: start: 20070131
  5. ISPAGHULA HUSK [Concomitant]
     Dates: start: 20100122
  6. FOLIC ACID [Concomitant]
     Dates: start: 20100416
  7. ARIPIPRAZOLE [Concomitant]
     Dates: start: 20100716
  8. DICLOFENAC SODIUM [Concomitant]
     Dates: start: 20100705

REACTIONS (2)
  - DRUG EXPOSURE DURING PREGNANCY [None]
  - SEXUALLY TRANSMITTED DISEASE [None]
